FAERS Safety Report 7877023-3 (Version None)
Quarter: 2011Q4

REPORT INFORMATION
  Report Type: 
  Country: None (occurrence: None)
  Receive Date: 20111031
  Receipt Date: 20110729
  Transmission Date: 20120403
  Serious: No
  Sender: FDA-Public Use
  Company Number: US-ABBOTT-11P-163-0842825-00

PATIENT
  Sex: Female

DRUGS (10)
  1. CREON [Suspect]
     Indication: CARCINOID SYNDROME
     Dosage: TWO PILLS WITH EACH MEAL
     Dates: start: 20110330, end: 20110501
  2. ASPIRIN [Concomitant]
     Indication: PROPHYLAXIS
  3. SANDOSTATIN LAR [Suspect]
     Indication: CARCINOID TUMOUR
     Dates: start: 20101201
  4. ALBUTEROL [Concomitant]
     Indication: CHRONIC OBSTRUCTIVE PULMONARY DISEASE
  5. ADVAIR DISKUS 100/50 [Concomitant]
     Indication: CHRONIC OBSTRUCTIVE PULMONARY DISEASE
  6. NEXIUM [Concomitant]
     Indication: GASTROOESOPHAGEAL REFLUX DISEASE
  7. SANDOSTATIN LAR [Suspect]
     Indication: VITAMIN B12 DECREASED
  8. CREON [Suspect]
     Indication: MALABSORPTION
     Dosage: ONE PILL WITH EACH MEAL
     Dates: start: 20110501
  9. POTASSIUM [Concomitant]
     Indication: MINERAL SUPPLEMENTATION
  10. DITHIAZIDE [Concomitant]
     Indication: HYPERTENSION

REACTIONS (1)
  - ALOPECIA [None]
